FAERS Safety Report 25194626 (Version 2)
Quarter: 2025Q2

REPORT INFORMATION
  Report Type: Spontaneous
  Country: US (occurrence: US)
  Receive Date: 20250414
  Receipt Date: 20250513
  Transmission Date: 20250716
  Serious: Yes (Other)
  Sender: APELLIS PHARMACEUTICALS
  Company Number: US-APELLIS-2025-APL-0000975

PATIENT

DRUGS (2)
  1. SYFOVRE [Suspect]
     Active Substance: PEGCETACOPLAN
     Indication: Dry age-related macular degeneration
     Route: 031
     Dates: start: 20240918, end: 20250212
  2. ELIQUIS [Suspect]
     Active Substance: APIXABAN
     Indication: Cardiac pacemaker insertion
     Dates: start: 20220509

REACTIONS (4)
  - Neovascular age-related macular degeneration [Not Recovered/Not Resolved]
  - Visual impairment [Not Recovered/Not Resolved]
  - Choroidal neovascularisation [Unknown]
  - Retinal haemorrhage [Unknown]

NARRATIVE: CASE EVENT DATE: 20250404
